FAERS Safety Report 6636760-9 (Version None)
Quarter: 2010Q1

REPORT INFORMATION
  Report Type: 
  Country: None (occurrence: None)
  Receive Date: 20100316
  Receipt Date: 20100308
  Transmission Date: 20100710
  Serious: Yes (Hospitalization, Other)
  Sender: FDA-Public Use
  Company Number: CHPA2010US04698

PATIENT
  Age: 5 Year
  Sex: Female
  Weight: 21.315 kg

DRUGS (4)
  1. TRIAMINIC COUGH AND SORE THROAT (GRAPE) [Suspect]
     Indication: INFLUENZA
     Dosage: 10 ML, Q6H
     Route: 048
     Dates: start: 20031126, end: 20031127
  2. TRIAMINIC COUGH AND SORE THROAT (GRAPE) [Suspect]
     Dosage: 10 ML, EVERY 3 HOURS X 3 DOSES
     Route: 048
     Dates: start: 20031130, end: 20031130
  3. ACETAMINOPHEN [Suspect]
     Indication: INFLUENZA
     Dosage: 320 MG, Q3H
     Route: 048
     Dates: start: 20031126, end: 20031127
  4. ACETAMINOPHEN [Suspect]
     Dosage: 320 MG, EVERY 3 HOURS TWICE
     Route: 048
     Dates: start: 20031130, end: 20031130

REACTIONS (10)
  - ALANINE AMINOTRANSFERASE INCREASED [None]
  - ASPARTATE AMINOTRANSFERASE INCREASED [None]
  - DECREASED APPETITE [None]
  - DEHYDRATION [None]
  - DRUG ADMINISTRATION ERROR [None]
  - INAPPROPRIATE SCHEDULE OF DRUG ADMINISTRATION [None]
  - INFLUENZA [None]
  - OFF LABEL USE [None]
  - OVERDOSE [None]
  - VOMITING [None]
